FAERS Safety Report 4317241-4 (Version None)
Quarter: 2004Q1

REPORT INFORMATION
  Report Type: 
  Country: None (occurrence: None)
  Receive Date: 20040312
  Receipt Date: 20040301
  Transmission Date: 20041129
  Serious: Yes (Death)
  Sender: FDA-Public Use
  Company Number: 04P-144-0251973-00

PATIENT
  Age: 43 Year
  Sex: Male

DRUGS (6)
  1. KALETRA [Suspect]
     Indication: HIV INFECTION
     Dosage: 2 CAPSULE, 2 IN 1 D, PER ORAL
     Route: 048
     Dates: start: 20030913, end: 20030320
  2. LORAZEPAM [Concomitant]
  3. LORMETAZEPAM [Concomitant]
  4. LEPONEX [Concomitant]
  5. DIDANOSINE [Concomitant]
  6. TENOFOVIR [Concomitant]

REACTIONS (1)
  - PROGRESSIVE MULTIFOCAL LEUKOENCEPHALOPATHY [None]
